FAERS Safety Report 25475529 (Version 2)
Quarter: 2025Q3

REPORT INFORMATION
  Report Type: Report from Study
  Country: PR (occurrence: PR)
  Receive Date: 20250624
  Receipt Date: 20250827
  Transmission Date: 20251020
  Serious: No
  Sender: MALLINCKRODT
  Company Number: PR-MALLINCKRODT-MNK202501006

PATIENT
  Age: 55 Year
  Sex: Female

DRUGS (2)
  1. CORTICOTROPIN [Suspect]
     Active Substance: CORTICOTROPIN
     Indication: Scleritis
     Route: 058
  2. HUMIRA [Concomitant]
     Active Substance: ADALIMUMAB

REACTIONS (11)
  - Anxiety [Unknown]
  - Spondylitis [Unknown]
  - Muscle strain [Unknown]
  - Illness [Unknown]
  - Dizziness [Unknown]
  - Inflammation [Unknown]
  - Weight decreased [Unknown]
  - Injection site discolouration [Recovered/Resolved]
  - Blood pressure increased [Unknown]
  - Drug ineffective [Unknown]
  - Intentional dose omission [Unknown]
